FAERS Safety Report 21126308 (Version 2)
Quarter: 2022Q3

REPORT INFORMATION
  Report Type: Spontaneous
  Country: PL (occurrence: PL)
  Receive Date: 20220725
  Receipt Date: 20220801
  Transmission Date: 20221026
  Serious: Yes (Other)
  Sender: FDA-Public Use
  Company Number: PL-NOVARTISPH-NVSC2022PL165852

PATIENT
  Sex: Male

DRUGS (2)
  1. FINGOLIMOD [Suspect]
     Active Substance: FINGOLIMOD
     Indication: Product used for unknown indication
     Dosage: UNK
     Route: 065
     Dates: start: 201608
  2. SIPONIMOD [Concomitant]
     Active Substance: SIPONIMOD
     Indication: Product used for unknown indication
     Dosage: 1 MG, QD
     Route: 065
     Dates: start: 202101

REACTIONS (8)
  - Secondary progressive multiple sclerosis [Unknown]
  - Demyelination [Unknown]
  - Paraparesis [Unknown]
  - Lymphopenia [Unknown]
  - Gait disturbance [Unknown]
  - Ataxia [Unknown]
  - Diplopia [Unknown]
  - JC polyomavirus test positive [Unknown]

NARRATIVE: CASE EVENT DATE: 20160101
